FAERS Safety Report 7876560-5 (Version None)
Quarter: 2011Q4

REPORT INFORMATION
  Report Type: 
  Country: None (occurrence: None)
  Receive Date: 20111031
  Receipt Date: 20111019
  Transmission Date: 20120403
  Serious: Yes (Hospitalization, Other)
  Sender: FDA-Public Use
  Company Number: US-ELI_LILLY_AND_COMPANY-US201107007370

PATIENT
  Sex: Male
  Weight: 158.73 kg

DRUGS (2)
  1. HUMULIN 70/30 [Suspect]
     Indication: DIABETES MELLITUS
     Dosage: 45 U, BID
     Dates: start: 20110101
  2. METFORMIN HCL [Concomitant]
     Dosage: 2000 MG, QD

REACTIONS (8)
  - FALL [None]
  - GLYCOSYLATED HAEMOGLOBIN INCREASED [None]
  - OSTEOMYELITIS [None]
  - OEDEMA PERIPHERAL [None]
  - ASTHENIA [None]
  - BLOOD GLUCOSE DECREASED [None]
  - ARTHROPOD STING [None]
  - DIZZINESS [None]
